FAERS Safety Report 21869698 (Version 1)
Quarter: 2023Q1

REPORT INFORMATION
  Report Type: Report from Study
  Country: CA (occurrence: CA)
  Receive Date: 20230117
  Receipt Date: 20230117
  Transmission Date: 20230417
  Serious: Yes (Other)
  Sender: FDA-Public Use
  Company Number: CA-ABBVIE-4215872

PATIENT
  Sex: Female

DRUGS (2)
  1. RINVOQ [Suspect]
     Active Substance: UPADACITINIB
     Indication: Crohn^s disease
     Dosage: FIRST ADMIN DATE: 01 NOV 2022?FORM STRENGTH: 30 MG
     Route: 048
  2. RINVOQ [Suspect]
     Active Substance: UPADACITINIB
     Indication: Crohn^s disease
     Dosage: FIRST ADMIN DATE: 11 NOV 2022
     Route: 048

REACTIONS (5)
  - Anaemia [Unknown]
  - Off label use [Unknown]
  - Nasopharyngitis [Unknown]
  - Haemoglobin decreased [Unknown]
  - Illness [Unknown]

NARRATIVE: CASE EVENT DATE: 20220101
